FAERS Safety Report 5928481-2 (Version None)
Quarter: 2008Q4

REPORT INFORMATION
  Report Type: 
  Country: None (occurrence: None)
  Receive Date: 20081020
  Receipt Date: 20081014
  Transmission Date: 20090506
  Serious: Yes (Death)
  Sender: FDA-Public Use
  Company Number: MSTR-NO-0810S-0100

PATIENT
  Age: 44 Year
  Sex: Male

DRUGS (1)
  1. METASTRON [Suspect]
     Indication: METASTATIC PAIN

REACTIONS (2)
  - COLON CANCER [None]
  - CONDITION AGGRAVATED [None]
